FAERS Safety Report 12272308 (Version 2)
Quarter: 2016Q2

REPORT INFORMATION
  Report Type: Spontaneous
  Country: SK (occurrence: SK)
  Receive Date: 20160415
  Receipt Date: 20160429
  Transmission Date: 20160815
  Serious: Yes (Hospitalization)
  Sender: FDA-Public Use
  Company Number: SK-AMGEN-SVKSP2016046558

PATIENT
  Age: 65 Year
  Sex: Female

DRUGS (8)
  1. PROCORALAN [Suspect]
     Active Substance: IVABRADINE
     Indication: CARDIAC FAILURE CHRONIC
     Dosage: 10 MG, DAILY
     Route: 048
     Dates: start: 201602, end: 20160412
  2. ENELBIN                            /00247502/ [Concomitant]
     Active Substance: NAFRONYL OXALATE
     Dosage: 2 DF, DAILY
     Dates: end: 20160405
  3. CORDARONE [Concomitant]
     Active Substance: AMIODARONE HYDROCHLORIDE
     Dosage: 1 DF, DAILY, FROM MONDAY TO FRIDAY
  4. PRESTARIUM A [Concomitant]
     Active Substance: PERINDOPRIL ARGININE
     Dosage: 5 MG, DAILY
  5. GLYCERYL TRINITRATE [Concomitant]
     Active Substance: NITROGLYCERIN
     Dosage: UNK AS REQUIRED
  6. OLICARD [Concomitant]
     Dosage: 1 DF, DAILY
     Dates: end: 20160405
  7. CONCOR [Concomitant]
     Active Substance: BISOPROLOL FUMARATE
     Dosage: 5 MG, DAILY
  8. FURON                              /00032601/ [Concomitant]
     Active Substance: FUROSEMIDE
     Dosage: 1 DF, DAILY

REACTIONS (7)
  - Rash papular [Recovering/Resolving]
  - Pruritus [Recovering/Resolving]
  - Dyspnoea [Unknown]
  - Photopsia [Recovered/Resolved]
  - Hypertension [Unknown]
  - Epistaxis [Recovered/Resolved]
  - Drug interaction [Unknown]

NARRATIVE: CASE EVENT DATE: 201603
